FAERS Safety Report 8271292-6 (Version None)
Quarter: 2012Q1

REPORT INFORMATION
  Report Type: 
  Country: None (occurrence: None)
  Receive Date: 20120308
  Receipt Date: 20111216
  Transmission Date: 20120608
  Serious: Yes (Other)
  Sender: FDA-Public Use
  Company Number: PHEH2011US011946

PATIENT
  Age: 25 Year
  Sex: Female
  Weight: 137 kg

DRUGS (3)
  1. RITALIN [Concomitant]
  2. SYNTHROID [Concomitant]
  3. FANAPT [Suspect]
     Indication: SCHIZOPHRENIA
     Dosage: 6 MG, BID, ORAL
     Route: 048
     Dates: start: 20111205

REACTIONS (2)
  - FLUID RETENTION [None]
  - WEIGHT INCREASED [None]
